FAERS Safety Report 5744908-3 (Version None)
Quarter: 2008Q2

REPORT INFORMATION
  Report Type: 
  Country: None (occurrence: None)
  Receive Date: 20080516
  Receipt Date: 20080502
  Transmission Date: 20081010
  Serious: Yes (Hospitalization)
  Sender: FDA-Public Use
  Company Number: 2008000953

PATIENT
  Age: 78 Year
  Sex: Female

DRUGS (10)
  1. ERLOTINIB (ERLOTINIB HCL) (TABLET) (ERLOTINIB HCL) [Suspect]
     Indication: NON-SMALL CELL LUNG CANCER
     Dosage: 150 MG, QD, ORAL
     Route: 048
     Dates: start: 20080214
  2. WARFARIN POTASSIUM (WARFARIN POTASSIUM) [Concomitant]
  3. ALFACALCIDOL (ALFACALCIDOL) [Concomitant]
  4. RISEDRONIC ACID (RISEDRONIC ACID) [Concomitant]
  5. ASPARA-CA (ASPARTATE CALCIUM) [Concomitant]
  6. LACTOBACILLUS BIFIDUS (LACTOBACILLUS BIFIDUS, LYOPHILIZED) [Concomitant]
  7. OMEPRAL (OMEPRAZOLE) [Concomitant]
  8. ETODOLAC [Concomitant]
  9. OXYCONTIN [Concomitant]
  10. MAGNESIUM OXIDE (MAGNESIUM OXIDE) [Concomitant]

REACTIONS (7)
  - DELIRIUM [None]
  - DEMENTIA [None]
  - DISEASE PROGRESSION [None]
  - DISORIENTATION [None]
  - GENERAL PHYSICAL HEALTH DETERIORATION [None]
  - MEMORY IMPAIRMENT [None]
  - RASH [None]
